FAERS Safety Report 24377845 (Version 1)
Quarter: 2024Q3

REPORT INFORMATION
  Report Type: Spontaneous
  Country: US (occurrence: US)
  Receive Date: 20240930
  Receipt Date: 20240930
  Transmission Date: 20241017
  Serious: No
  Sender: JOHNSON AND JOHNSON
  Company Number: US-JNJFOC-20240959834

PATIENT
  Age: 31 Year
  Sex: Female

DRUGS (5)
  1. RILPIVIRINE [Suspect]
     Active Substance: RILPIVIRINE
     Indication: Product used for unknown indication
     Dosage: 900 MG/3ML
     Route: 030
     Dates: start: 20240630
  2. CABOTEGRAVIR [Suspect]
     Active Substance: CABOTEGRAVIR
     Indication: Product used for unknown indication
     Dosage: 600 MG/3ML
     Route: 030
     Dates: start: 20240630
  3. EDURANT [Concomitant]
     Active Substance: RILPIVIRINE HYDROCHLORIDE
     Dosage: 1 TABLET WITH MEAL
     Route: 048
  4. NEXPLANON [Concomitant]
     Active Substance: ETONOGESTREL
     Route: 058
  5. VOLTAREN [Concomitant]
     Active Substance: DICLOFENAC SODIUM
     Indication: Arthralgia
     Dosage: EXTERNALLY 1 %

REACTIONS (2)
  - Poor quality product administered [Unknown]
  - Product complaint [Unknown]

NARRATIVE: CASE EVENT DATE: 20240830
